FAERS Safety Report 25755991 (Version 1)
Quarter: 2025Q3

REPORT INFORMATION
  Report Type: Spontaneous
  Country: US (occurrence: None)
  Receive Date: 20250902
  Receipt Date: 20250902
  Transmission Date: 20251020
  Serious: Yes (Hospitalization)
  Sender: FDA-CTU
  Company Number: None

PATIENT
  Age: 80 Year
  Sex: Male
  Weight: 78.75 kg

DRUGS (3)
  1. METHOTREXATE [Suspect]
     Active Substance: METHOTREXATE
     Indication: Rheumatoid arthritis
     Route: 048
  2. VITAMINS [Concomitant]
     Active Substance: VITAMINS
  3. IRON [Concomitant]
     Active Substance: IRON

REACTIONS (7)
  - Pharyngeal enanthema [None]
  - Rash [None]
  - Oropharyngeal pain [None]
  - Hypophagia [None]
  - White blood cell count decreased [None]
  - Alopecia [None]
  - Red blood cell count decreased [None]

NARRATIVE: CASE EVENT DATE: 20250517
